FAERS Safety Report 11221168 (Version 1)
Quarter: 2015Q2

REPORT INFORMATION
  Report Type: Spontaneous
  Country: DE (occurrence: DE)
  Receive Date: 20150626
  Receipt Date: 20150626
  Transmission Date: 20150821
  Serious: Yes (Other)
  Sender: FDA-Public Use
  Company Number: DE-AUROBINDO-AUR-APL-2015-05405

PATIENT
  Age: 29 Year
  Sex: Female
  Weight: 84 kg

DRUGS (6)
  1. BISOPROLOL 5 MG [Suspect]
     Active Substance: BISOPROLOL
     Indication: HYPERTENSION
     Dosage: 5 MG, TWO TIMES A DAY
     Route: 065
     Dates: start: 20120713, end: 20130316
  2. FOLSAEURE [Concomitant]
     Active Substance: FOLIC ACID
     Indication: PROPHYLAXIS OF NEURAL TUBE DEFECT
     Dosage: UNK
     Route: 065
     Dates: start: 20120711, end: 20130316
  3. PRESINOL [Suspect]
     Active Substance: METHYLDOPA
     Indication: HYPERTENSION
     Dosage: 250 MG, DAILY
     Route: 065
     Dates: start: 20120729, end: 20130316
  4. MICARDIS [Concomitant]
     Active Substance: TELMISARTAN
     Indication: HYPERTENSION
     Dosage: UNK
     Route: 065
     Dates: start: 20120606, end: 20120712
  5. PRESINOL [Suspect]
     Active Substance: METHYLDOPA
     Dosage: 1000 MG, DAILY
     Route: 065
     Dates: start: 20120729, end: 20130316
  6. RASILEZ [Concomitant]
     Active Substance: ALISKIREN
     Indication: HYPERTENSION
     Dosage: 25 MG, DAILY
     Route: 065
     Dates: start: 20120606, end: 20120712

REACTIONS (3)
  - Leiomyoma [Unknown]
  - Exposure during pregnancy [Unknown]
  - Gestational diabetes [Unknown]
